FAERS Safety Report 9918195 (Version 2)
Quarter: 2014Q1

REPORT INFORMATION
  Report Type: Report from Study
  Country: DE (occurrence: DE)
  Receive Date: 20140223
  Receipt Date: 20140321
  Transmission Date: 20141002
  Serious: Yes (Hospitalization)
  Sender: FDA-Public Use
  Company Number: DE-ROCHE-1351108

PATIENT
  Age: 38 Year
  Sex: Female
  Weight: 112 kg

DRUGS (2)
  1. RITUXIMAB [Suspect]
     Indication: MALIGNANT LYMPHOID NEOPLASM
     Dosage: DATE OF LAST DOSE PRIOR TO SAE 12/DEC/2013
     Route: 042
     Dates: start: 20110518
  2. PANTOZOL (GERMANY) [Concomitant]

REACTIONS (1)
  - Pulmonary embolism [Recovered/Resolved]
